FAERS Safety Report 21823645 (Version 1)
Quarter: 2023Q1

REPORT INFORMATION
  Report Type: Spontaneous
  Country: US (occurrence: US)
  Receive Date: 20230105
  Receipt Date: 20230105
  Transmission Date: 20230418
  Serious: No
  Sender: FDA-Public Use
  Company Number: US-PFIZER INC-202300003784

PATIENT
  Sex: Male

DRUGS (1)
  1. CEREBYX [Suspect]
     Active Substance: FOSPHENYTOIN SODIUM
     Indication: Seizure
     Dosage: UNK (THREE TIMES IN NINE DAYS)

REACTIONS (1)
  - Injection site pain [Unknown]
